FAERS Safety Report 10726189 (Version 1)
Quarter: 2015Q1

REPORT INFORMATION
  Report Type: Spontaneous
  Country: US (occurrence: None)
  Receive Date: 20150120
  Receipt Date: 20150120
  Transmission Date: 20150721
  Serious: Yes (Other)
  Sender: FDA-Public Use
  Company Number: None

PATIENT
  Age: 79 Year
  Sex: Male

DRUGS (1)
  1. XTANDI [Suspect]
     Active Substance: ENZALUTAMIDE
     Indication: PROSTATE CANCER
     Dosage: 4 CAPS, QD, PO
     Route: 048

REACTIONS (8)
  - Back pain [None]
  - Pain in extremity [None]
  - Nausea [None]
  - Hot flush [None]
  - Drug intolerance [None]
  - Burning sensation [None]
  - Dyspepsia [None]
  - Sleep disorder [None]

NARRATIVE: CASE EVENT DATE: 20150108
